FAERS Safety Report 6176447-2 (Version None)
Quarter: 2009Q2

REPORT INFORMATION
  Report Type: 
  Country: None (occurrence: None)
  Receive Date: 20090501
  Receipt Date: 20090420
  Transmission Date: 20091009
  Serious: Yes (Hospitalization)
  Sender: FDA-Public Use
  Company Number: ES-ELI_LILLY_AND_COMPANY-ES200904004385

PATIENT
  Age: 67 Year
  Sex: Female

DRUGS (14)
  1. FORTEO [Suspect]
     Indication: OSTEOPOROSIS
     Dosage: 20 UG, UNKNOWN
     Route: 058
     Dates: start: 20081225, end: 20090413
  2. DACORTIN [Concomitant]
     Dosage: 15 UNK, UNKNOWN
     Route: 065
  3. OMEPRAZOL [Concomitant]
     Dosage: UNK, UNKNOWN
     Route: 065
  4. EXODERIL [Concomitant]
     Dosage: 25 UNK, UNKNOWN
     Route: 065
  5. ALLOPURINOL [Concomitant]
     Dosage: 100 UNK, UNKNOWN
     Route: 065
  6. COZAAR [Concomitant]
     Dosage: 50 UNK, UNKNOWN
     Route: 065
  7. ADALAT [Concomitant]
     Dosage: 20 UNK, UNKNOWN
     Route: 065
  8. LYRICA [Concomitant]
     Dosage: 150 UNK, UNKNOWN
     Route: 065
  9. ASPIRIN [Concomitant]
     Dosage: UNK, UNKNOWN
     Route: 065
  10. URION [Concomitant]
     Dosage: 100 UNK, UNKNOWN
     Route: 065
  11. CALCIUM [Concomitant]
     Indication: OSTEOPOROSIS
     Dosage: UNK, UNKNOWN
     Route: 065
  12. PREVENCOR [Concomitant]
     Dosage: UNK, UNKNOWN
     Route: 065
  13. DURAGESIC-100 [Concomitant]
     Dosage: UNK, UNKNOWN
     Route: 065
  14. ANTIBIOTICS [Concomitant]
     Indication: COLITIS ISCHAEMIC
     Dosage: UNK, UNKNOWN
     Route: 065

REACTIONS (5)
  - COLITIS ISCHAEMIC [None]
  - DIARRHOEA [None]
  - HAEMATOCHEZIA [None]
  - PYREXIA [None]
  - RED BLOOD CELL COUNT INCREASED [None]
